FAERS Safety Report 22382544 (Version 1)
Quarter: 2023Q2

REPORT INFORMATION
  Report Type: Report from Study
  Country: US (occurrence: US)
  Receive Date: 20230530
  Receipt Date: 20230530
  Transmission Date: 20230721
  Serious: Yes (Other)
  Sender: FDA-Public Use
  Company Number: US-002147023-NVSC2023US120330

PATIENT
  Sex: Male

DRUGS (1)
  1. ILARIS [Suspect]
     Active Substance: CANAKINUMAB
     Indication: Juvenile idiopathic arthritis
     Dosage: 180 MG, OTHER, EVERY 21 DAYS
     Route: 058
     Dates: start: 20220326

REACTIONS (2)
  - Rheumatoid arthritis [Unknown]
  - Inappropriate schedule of product administration [Unknown]
